FAERS Safety Report 17158430 (Version 1)
Quarter: 2019Q4

REPORT INFORMATION
  Report Type: Spontaneous
  Country: US (occurrence: US)
  Receive Date: 20191213
  Receipt Date: 20191213
  Transmission Date: 20200122
  Serious: Yes (Hospitalization)
  Sender: FDA-Public Use
  Company Number: None

PATIENT
  Age: 81 Year
  Sex: Male
  Weight: 49.7 kg

DRUGS (5)
  1. RIVAROXABAN [Suspect]
     Active Substance: RIVAROXABAN
     Indication: ATRIAL FIBRILLATION
     Route: 048
     Dates: start: 20150817
  2. METOPROLOL 12.5MG BID [Concomitant]
  3. FAMOTIDINE 40MG DAILY [Concomitant]
  4. CARBIDOPA/LEVODOPA 25/100MG QID [Concomitant]
  5. AMIODARONE 200MG DAILY [Concomitant]

REACTIONS (6)
  - Helicobacter gastritis [None]
  - Altered state of consciousness [None]
  - Hypoglycaemia [None]
  - Haemoglobin decreased [None]
  - Packed red blood cell transfusion [None]
  - Gastrointestinal haemorrhage [None]

NARRATIVE: CASE EVENT DATE: 20160126
